FAERS Safety Report 8078223-2 (Version None)
Quarter: 2012Q1

REPORT INFORMATION
  Report Type: 
  Country: None (occurrence: None)
  Receive Date: 20120127
  Receipt Date: 20110114
  Transmission Date: 20120608
  Serious: No
  Sender: FDA-Public Use
  Company Number: US-ABBOTT-10P-163-0693290-00

PATIENT
  Sex: Male
  Weight: 65.376 kg

DRUGS (13)
  1. MULTI-VITAMIN [Concomitant]
     Indication: PRODUCT USED FOR UNKNOWN INDICATION
  2. FLOMAX [Concomitant]
     Indication: DYSURIA
  3. REMERON [Concomitant]
     Indication: ANXIETY
  4. KLONOPIN [Concomitant]
     Indication: NEURALGIA
     Dosage: AT BEDTIME
  5. CARAFATE [Concomitant]
     Indication: GASTRITIS
     Dosage: AT BEDTIME
  6. HUMIRA [Suspect]
     Indication: RHEUMATOID ARTHRITIS
     Dates: start: 20090801, end: 20100201
  7. FLOMAX [Concomitant]
     Indication: NERVE COMPRESSION
  8. REMERON [Concomitant]
     Indication: PAIN THRESHOLD DECREASED
  9. HUMIRA [Suspect]
     Indication: COLITIS ULCERATIVE
     Dates: start: 20100201
  10. VICODIN [Concomitant]
     Indication: PAIN
     Dosage: 7.5/500MG IN THE AM
  11. REMERON [Concomitant]
     Indication: INSOMNIA
     Dosage: AT BEDTIME
  12. ZANTAC [Concomitant]
     Indication: GASTRITIS
  13. TRAMADOL HCL [Concomitant]
     Indication: PAIN
     Dosage: PRN

REACTIONS (10)
  - HEADACHE [None]
  - LIMB DISCOMFORT [None]
  - PAIN IN EXTREMITY [None]
  - RHEUMATOID ARTHRITIS [None]
  - JOINT SWELLING [None]
  - ARTHROPATHY [None]
  - OEDEMA PERIPHERAL [None]
  - PRODUCT QUALITY ISSUE [None]
  - ARTHRALGIA [None]
  - NASOPHARYNGITIS [None]
